FAERS Safety Report 8663496 (Version 6)
Quarter: 2013Q3

REPORT INFORMATION
  Report Type: Report from Study
  Country: ES (occurrence: ES)
  Receive Date: 20120713
  Receipt Date: 20130725
  Transmission Date: 20140515
  Serious: Yes (Hospitalization)
  Sender: FDA-Public Use
  Company Number: ES-JNJFOC-20120704670

PATIENT
  Age: 74 Year
  Sex: Male
  Weight: 70 kg

DRUGS (6)
  1. REMICADE [Suspect]
     Indication: COLITIS ULCERATIVE
     Route: 042
     Dates: end: 20110323
  2. REMICADE [Suspect]
     Indication: COLITIS ULCERATIVE
     Route: 042
     Dates: start: 20100514, end: 20100621
  3. PREDNISONE [Suspect]
     Indication: DRUG DEPENDENCE
     Dates: start: 201104, end: 201109
  4. PREDNISONE [Suspect]
     Indication: COLITIS ULCERATIVE
     Dates: start: 201104, end: 201109
  5. AZATHIOPRINE [Suspect]
     Indication: COLITIS ULCERATIVE
     Dates: start: 201101, end: 201109
  6. AZATHIOPRINE [Suspect]
     Indication: COLITIS ULCERATIVE
     Dates: start: 200911

REACTIONS (1)
  - Colitis ulcerative [Recovered/Resolved]
